FAERS Safety Report 4843730-X (Version None)
Quarter: 2005Q4

REPORT INFORMATION
  Report Type: 
  Country: None (occurrence: None)
  Receive Date: 20051129
  Receipt Date: 20051111
  Transmission Date: 20060501
  Serious: No
  Sender: FDA-Public Use
  Company Number: GB200511000192

PATIENT
  Age: 13 Year
  Sex: Male
  Weight: 47.9 kg

DRUGS (1)
  1. STRATTERA [Suspect]
     Indication: ATTENTION DEFICIT/HYPERACTIVITY DISORDER
     Dosage: 50 MG DAILY 1/D ORAL
     Route: 048
     Dates: start: 20050218, end: 20051028

REACTIONS (2)
  - BLOOD BILIRUBIN INCREASED [None]
  - JAUNDICE [None]
